FAERS Safety Report 8597035 (Version 8)
Quarter: 2014Q2

REPORT INFORMATION
  Report Type: Spontaneous
  Country: US (occurrence: US)
  Receive Date: 20120605
  Receipt Date: 20140508
  Transmission Date: 20141212
  Serious: No
  Sender: FDA-Public Use
  Company Number: US-PFIZER INC-2012131147

PATIENT
  Age: 86 Year
  Sex: Female
  Weight: 81.63 kg

DRUGS (10)
  1. NORVASC [Suspect]
     Indication: ESSENTIAL HYPERTENSION
     Dosage: 5 MG, 1X/DAY
     Route: 048
     Dates: start: 20091024, end: 20100507
  2. TOPROL XL [Concomitant]
     Indication: HYPERTENSION
     Dosage: 50 MG, 1X/DAY
  3. LANOXIN [Concomitant]
     Indication: ATRIAL FIBRILLATION
     Dosage: 0.125 MG, DAILY
     Route: 048
  4. LEVOTHYROXINE [Concomitant]
     Dosage: 25 UG, DAILY
  5. ZANTAC [Concomitant]
     Indication: PROPHYLAXIS AGAINST GASTROINTESTINAL ULCER
     Dosage: 150 MG, 2X/DAY
     Route: 048
  6. CUMADIN [Concomitant]
     Dosage: 5 MG, AS DIRECTED
  7. CUMADIN [Concomitant]
     Dosage: 4 MG, 1X/DAY
  8. LEVAQUIN [Concomitant]
     Indication: PNEUMONIA BACTERIAL
     Dosage: 500 MG, DAILY (X5D)
     Route: 048
  9. LEVAQUIN [Concomitant]
     Indication: URINARY TRACT INFECTION
  10. CALTRATE + D [Concomitant]
     Indication: BONE DISORDER
     Dosage: 600 MG/400 IU

REACTIONS (4)
  - Oedema [Recovered/Resolved]
  - Stasis dermatitis [Not Recovered/Not Resolved]
  - Skin ulcer [Not Recovered/Not Resolved]
  - Wound secretion [Unknown]
